FAERS Safety Report 22199708 (Version 1)
Quarter: 2023Q2

REPORT INFORMATION
  Report Type: Spontaneous
  Country: US (occurrence: US)
  Receive Date: 20230412
  Receipt Date: 20230412
  Transmission Date: 20230721
  Serious: No
  Sender: FDA-Public Use
  Company Number: US-JNJFOC-20230374870

PATIENT
  Sex: Female

DRUGS (3)
  1. TYLENOL 8HR [Suspect]
     Active Substance: ACETAMINOPHEN
     Indication: Foot fracture
     Dosage: STARTED TWO AND THEN WOULD TAKE ONE USUALLY IN THE AFTER - ONCE A DAY MAYBE EVERY OTHER DAY
     Route: 065
     Dates: start: 20230315
  2. TYLENOL 8HR [Suspect]
     Active Substance: ACETAMINOPHEN
     Dosage: STARTED TWO AND THEN WOULD TAKE ONE USUALLY IN THE AFTER - ONCE A DAY MAYBE EVERY OTHER DAY
     Route: 065
     Dates: start: 202303
  3. FISH OIL [Concomitant]
     Active Substance: FISH OIL
     Indication: Product used for unknown indication
     Route: 065

REACTIONS (2)
  - Inappropriate schedule of product administration [Unknown]
  - Incorrect dose administered [Unknown]

NARRATIVE: CASE EVENT DATE: 20230301
